FAERS Safety Report 10313272 (Version 3)
Quarter: 2014Q4

REPORT INFORMATION
  Report Type: Spontaneous
  Country: US (occurrence: US)
  Receive Date: 20140718
  Receipt Date: 20141104
  Transmission Date: 20150528
  Serious: Yes (Other)
  Sender: FDA-Public Use
  Company Number: US-BAYER-2014-106956

PATIENT
  Age: 43 Year
  Sex: Female

DRUGS (2)
  1. MIRENA [Suspect]
     Active Substance: LEVONORGESTREL
     Indication: BLOOD OESTROGEN ABNORMAL
     Dosage: 20 MCG/24HR, CONT
     Route: 015
     Dates: start: 20090710, end: 20140715
  2. MIRENA [Suspect]
     Active Substance: LEVONORGESTREL
     Indication: GENITAL HAEMORRHAGE

REACTIONS (9)
  - Device dislocation [None]
  - Embedded device [None]
  - Procedural pain [None]
  - Presyncope [None]
  - Device difficult to use [None]
  - Device misuse [None]
  - Discomfort [None]
  - Complication of device removal [None]
  - Off label use [None]

NARRATIVE: CASE EVENT DATE: 20090710
